FAERS Safety Report 6816305-0 (Version None)
Quarter: 2010Q3

REPORT INFORMATION
  Report Type: 
  Country: None (occurrence: None)
  Receive Date: 20100705
  Receipt Date: 20100621
  Transmission Date: 20110219
  Serious: Yes (Other)
  Sender: FDA-Public Use
  Company Number: PHEH2006US10884

PATIENT
  Sex: Female
  Weight: 77.3 kg

DRUGS (32)
  1. AREDIA [Suspect]
     Indication: MULTIPLE MYELOMA
     Dosage: 90 MG, QMO
     Dates: start: 19951101
  2. AREDIA [Suspect]
     Dosage: 90 MG, UNK
     Dates: start: 20020501
  3. ZOMETA [Suspect]
     Dosage: 4 MG, UNK
     Dates: end: 20020501
  4. DEXAMETHASONE [Concomitant]
     Indication: MULTIPLE MYELOMA
     Dosage: 40 MG FOR 4 DAYS MONTHLY
     Route: 048
     Dates: start: 19951101, end: 20000111
  5. INTERFERON [Concomitant]
     Indication: MULTIPLE MYELOMA
     Dates: end: 20000111
  6. THALIDOMIDE [Concomitant]
     Indication: MULTIPLE MYELOMA
     Dosage: 100 MG, QD
     Route: 048
     Dates: start: 20000111
  7. PROCARDIA XL [Concomitant]
     Indication: HYPERTENSION
     Dosage: 30 MG, QD
     Route: 048
  8. BACTRIM DS [Concomitant]
  9. DIFLUCAN [Concomitant]
  10. RESTORIL [Concomitant]
  11. VALTREX [Concomitant]
  12. CLONIDINE [Concomitant]
     Indication: HYPERTENSION
  13. PROCRIT                            /00909301/ [Concomitant]
  14. AXID [Concomitant]
     Dosage: 150 MG, BID
  15. VINCRISTINE [Concomitant]
     Indication: MULTIPLE MYELOMA
     Dates: start: 19951201, end: 19960301
  16. ADRIAMYCIN PFS [Concomitant]
     Indication: MULTIPLE MYELOMA
     Dates: start: 19951201, end: 19960301
  17. MELPHALAN HYDROCHLORIDE [Concomitant]
     Dates: start: 19961001
  18. MELPHALAN HYDROCHLORIDE [Concomitant]
     Dates: start: 19970201
  19. EPOGEN [Concomitant]
     Dosage: UNK, PRN
  20. PROCRIT [Concomitant]
     Dosage: QD
     Route: 042
  21. CATAPRES [Concomitant]
     Dosage: 0.1 MG, QD
     Route: 048
  22. BIDEX [Concomitant]
     Dosage: 400 MG, TID
     Route: 048
  23. NEXIUM [Concomitant]
     Dosage: 20 MG, QD
     Route: 048
  24. DIAZEPAM [Concomitant]
     Dosage: 5 MG, BID
     Route: 048
  25. IMURAN [Concomitant]
     Dosage: 50 MG, TID
  26. FAMOTIDINE [Concomitant]
     Dosage: 20 MG, BID
     Route: 048
  27. LORTAB [Concomitant]
     Dosage: PRN
  28. MEPERIDINE W/PROMETHAZINE [Concomitant]
     Dosage: PRN
     Route: 048
  29. AZASAN [Concomitant]
     Dosage: 50 MG, QD
  30. AMOXICILLIN [Concomitant]
     Dosage: 875 MG, BID
     Route: 048
  31. TOPROL-XL [Concomitant]
     Dosage: 50 MG, QD
     Route: 048
  32. ZYRTEC-D 12 HOUR [Concomitant]
     Dosage: 120 MG, BID
     Route: 048

REACTIONS (61)
  - ABDOMINAL PAIN [None]
  - ABSCESS [None]
  - ALKALOSIS [None]
  - ANXIETY [None]
  - APLASTIC ANAEMIA [None]
  - ATELECTASIS [None]
  - BLINDNESS [None]
  - BLOOD ALBUMIN DECREASED [None]
  - BLOOD CALCIUM DECREASED [None]
  - BLOOD POTASSIUM INCREASED [None]
  - BONE DEBRIDEMENT [None]
  - CARBON DIOXIDE INCREASED [None]
  - CARDIAC FAILURE CONGESTIVE [None]
  - CHEST PAIN [None]
  - CONSTIPATION [None]
  - CSF PROTEIN INCREASED [None]
  - DECREASED INTEREST [None]
  - DIZZINESS [None]
  - EXCESSIVE GRANULATION TISSUE [None]
  - FIBROCYSTIC BREAST DISEASE [None]
  - GALLBLADDER DISORDER [None]
  - GENERAL PHYSICAL HEALTH DETERIORATION [None]
  - GRANULOMA [None]
  - HEADACHE [None]
  - HYDROCEPHALUS [None]
  - HYPERTENSION [None]
  - HYPOKALAEMIA [None]
  - HYSTERECTOMY [None]
  - INFLAMMATION [None]
  - JOINT SURGERY [None]
  - LYMPHADENOPATHY [None]
  - MUCOSAL INFLAMMATION [None]
  - MULTIPLE SCLEROSIS [None]
  - MUSCULOSKELETAL PAIN [None]
  - NASAL DISORDER [None]
  - NAUSEA [None]
  - NUCLEAR MAGNETIC RESONANCE IMAGING BRAIN [None]
  - OPTIC NEURITIS [None]
  - OSTEOARTHRITIS [None]
  - OSTEOMYELITIS [None]
  - OSTEONECROSIS OF JAW [None]
  - PAIN [None]
  - PARANASAL SINUS BENIGN NEOPLASM [None]
  - PATHOLOGICAL FRACTURE [None]
  - PLEURAL EFFUSION [None]
  - PNEUMONIA [None]
  - PULMONARY ARTERY DILATATION [None]
  - PULMONARY OEDEMA [None]
  - PYREXIA [None]
  - RENAL DISORDER [None]
  - RIB FRACTURE [None]
  - RIGHT VENTRICULAR HYPERTROPHY [None]
  - SALPINGO-OOPHORECTOMY BILATERAL [None]
  - SARCOIDOSIS [None]
  - SWELLING [None]
  - TOOTH EXTRACTION [None]
  - TUBERCULOSIS [None]
  - UTERINE LEIOMYOMA [None]
  - VENTRICULO-PERITONEAL SHUNT [None]
  - VISUAL IMPAIRMENT [None]
  - VOMITING [None]
